FAERS Safety Report 9116043 (Version 1)
Quarter: 2013Q1

REPORT INFORMATION
  Report Type: Spontaneous
  Country: BE (occurrence: BE)
  Receive Date: 20130225
  Receipt Date: 20130225
  Transmission Date: 20140127
  Serious: Yes (Death, Other)
  Sender: FDA-Public Use
  Company Number: PHHY2013BE016935

PATIENT
  Sex: Female

DRUGS (2)
  1. GILENYA [Suspect]
     Indication: MULTIPLE SCLEROSIS
     Dosage: 0.5 MG, QD
     Route: 048
     Dates: start: 20120627
  2. SIPRALEXA [Concomitant]
     Dosage: 1 UKN, QD

REACTIONS (21)
  - Myocardial infarction [Fatal]
  - Cardiogenic shock [Fatal]
  - Troponin T increased [Fatal]
  - Aneurysm [Unknown]
  - Hypotension [Unknown]
  - Heart rate increased [Unknown]
  - Hypothermia [Unknown]
  - Haemoglobin decreased [Unknown]
  - Haematocrit decreased [Unknown]
  - White blood cell count increased [Unknown]
  - Neutrophil percentage increased [Unknown]
  - Fibrin D dimer increased [Unknown]
  - Blood creatinine increased [Unknown]
  - Blood glucose increased [Unknown]
  - Blood bicarbonate decreased [Unknown]
  - Blood lactic acid increased [Unknown]
  - C-reactive protein increased [Unknown]
  - Blood lactate dehydrogenase increased [Unknown]
  - Aspartate aminotransferase increased [Unknown]
  - Gamma-glutamyltransferase increased [Unknown]
  - Lymphocyte percentage decreased [Unknown]
